FAERS Safety Report 25772995 (Version 1)
Quarter: 2025Q3

REPORT INFORMATION
  Report Type: Spontaneous
  Country: JP (occurrence: JP)
  Receive Date: 20250908
  Receipt Date: 20250908
  Transmission Date: 20251020
  Serious: Yes (Other)
  Sender: MERCK SHARP & DOHME LLC
  Company Number: JP-009507513-2325936

PATIENT
  Age: 49 Year
  Sex: Female

DRUGS (5)
  1. KEYTRUDA [Suspect]
     Active Substance: PEMBROLIZUMAB
     Indication: Malignant neoplasm of renal pelvis
     Route: 065
  2. ENFORTUMAB VEDOTIN [Suspect]
     Active Substance: ENFORTUMAB VEDOTIN
     Indication: Malignant neoplasm of renal pelvis
  3. ENFORTUMAB VEDOTIN [Suspect]
     Active Substance: ENFORTUMAB VEDOTIN
     Indication: Malignant neoplasm of renal pelvis
  4. ENFORTUMAB VEDOTIN [Suspect]
     Active Substance: ENFORTUMAB VEDOTIN
     Indication: Malignant neoplasm of renal pelvis
  5. ENFORTUMAB VEDOTIN [Suspect]
     Active Substance: ENFORTUMAB VEDOTIN
     Indication: Malignant neoplasm of renal pelvis

REACTIONS (11)
  - Neuropathy peripheral [Recovered/Resolved]
  - Therapy partial responder [Unknown]
  - Taste disorder [Recovered/Resolved]
  - Rash [Recovered/Resolved]
  - Pruritus [Unknown]
  - Malignant neoplasm progression [Unknown]
  - Alopecia [Recovered/Resolved]
  - Therapy partial responder [Unknown]
  - Therapy partial responder [Unknown]
  - Therapy partial responder [Unknown]
  - Therapy partial responder [Unknown]
